FAERS Safety Report 4967435-X (Version None)
Quarter: 2006Q2

REPORT INFORMATION
  Report Type: 
  Country: None (occurrence: None)
  Receive Date: 20060410
  Receipt Date: 20060327
  Transmission Date: 20061013
  Serious: No
  Sender: FDA-Public Use
  Company Number: DE-AMGEN-UK173888

PATIENT
  Sex: Female
  Weight: 60 kg

DRUGS (3)
  1. NEUPOGEN [Suspect]
     Indication: PERIPHERAL BLOOD STEM CELL APHERESIS
     Route: 058
     Dates: start: 20060316, end: 20060320
  2. UNSPECIFIED HERBAL PRODUCT [Concomitant]
     Route: 048
  3. ASCORBIC ACID [Concomitant]

REACTIONS (1)
  - DRUG INEFFECTIVE [None]
